FAERS Safety Report 22964739 (Version 3)
Quarter: 2023Q4

REPORT INFORMATION
  Report Type: Spontaneous
  Country: US (occurrence: US)
  Receive Date: 20230921
  Receipt Date: 20231011
  Transmission Date: 20240110
  Serious: Yes (Life-Threatening, Hospitalization, Disabling, Other)
  Sender: FDA-Public Use
  Company Number: US-009507513-2309USA005069

PATIENT
  Sex: Female
  Weight: 54.9 kg

DRUGS (7)
  1. KEYTRUDA [Suspect]
     Active Substance: PEMBROLIZUMAB
     Indication: Triple negative breast cancer
     Dosage: 200 MILLIGRAM, EVERY 3 WEEKS (Q3W)
     Route: 042
     Dates: start: 20230622, end: 20230622
  2. KEYTRUDA [Suspect]
     Active Substance: PEMBROLIZUMAB
     Dosage: UNK
     Route: 042
     Dates: start: 20230713, end: 20230713
  3. KEYTRUDA [Suspect]
     Active Substance: PEMBROLIZUMAB
     Dosage: UNK
     Route: 042
     Dates: start: 20230803, end: 20230803
  4. KEYTRUDA [Suspect]
     Active Substance: PEMBROLIZUMAB
     Dosage: UNK
     Route: 042
     Dates: start: 20230824, end: 20230824
  5. PACLITAXEL [Suspect]
     Active Substance: PACLITAXEL
     Indication: Triple negative breast cancer
     Dosage: UNK
     Dates: start: 2023
  6. HEPARIN SODIUM [Concomitant]
     Active Substance: HEPARIN SODIUM
  7. SODIUM [Concomitant]
     Active Substance: SODIUM

REACTIONS (2)
  - Diabetic ketoacidosis [Not Recovered/Not Resolved]
  - Type 1 diabetes mellitus [Recovered/Resolved]

NARRATIVE: CASE EVENT DATE: 20230101
